FAERS Safety Report 25315320 (Version 2)
Quarter: 2025Q4

REPORT INFORMATION
  Report Type: Report from Study
  Country: US (occurrence: US)
  Receive Date: 20250514
  Receipt Date: 20251212
  Transmission Date: 20260118
  Serious: Yes (Other)
  Sender: MALLINCKRODT
  Company Number: US-MALLINCKRODT-MNK202502020

PATIENT
  Sex: Female

DRUGS (3)
  1. CORTICOTROPIN [Suspect]
     Active Substance: CORTICOTROPIN
     Indication: Dermatomyositis
     Dosage: 40 UNITS
     Dates: start: 20230701
  2. CORTICOTROPIN [Suspect]
     Active Substance: CORTICOTROPIN
     Indication: Dermatomyositis
  3. RITUXAN [Concomitant]
     Active Substance: RITUXIMAB
     Dosage: UNKNOWN

REACTIONS (7)
  - Hallucination [Not Recovered/Not Resolved]
  - Gastric ulcer [Unknown]
  - Abdominal discomfort [Unknown]
  - Nodule [Unknown]
  - Inflammation [Unknown]
  - Insomnia [Unknown]
  - Blood pressure fluctuation [Not Recovered/Not Resolved]
